FAERS Safety Report 6592417 (Version 3)
Quarter: 2013Q1

REPORT INFORMATION
  Report Type: Spontaneous
  Country: GB (occurrence: GB)
  Receive Date: 20080325
  Receipt Date: 20130319
  Transmission Date: 20140127
  Serious: Yes (Death)
  Sender: FDA-Public Use
  Company Number: GB-JNJFOC-20040703220

PATIENT
  Age: 16 Month
  Sex: 0

DRUGS (1)
  1. IBUPROFEN [Suspect]
     Indication: PRODUCT USED FOR UNKNOWN INDICATION
     Dosage: 469 MG/KG

REACTIONS (6)
  - Sepsis [Fatal]
  - Apnoea [Not Recovered/Not Resolved]
  - Aspiration [Not Recovered/Not Resolved]
  - Pneumonitis [Not Recovered/Not Resolved]
  - Overdose [Not Recovered/Not Resolved]
  - Convulsion [Not Recovered/Not Resolved]
